FAERS Safety Report 19786856 (Version 1)
Quarter: 2021Q3

REPORT INFORMATION
  Report Type: Report from Study
  Country: PA (occurrence: PA)
  Receive Date: 20210903
  Receipt Date: 20210903
  Transmission Date: 20211014
  Serious: Yes (Other)
  Sender: FDA-Public Use
  Company Number: NVSC2021PA198736

PATIENT
  Age: 84 Year
  Sex: Female

DRUGS (1)
  1. EXFORGE [Suspect]
     Active Substance: AMLODIPINE BESYLATE\VALSARTAN
     Indication: PRODUCT USED FOR UNKNOWN INDICATION
     Dosage: UNK 5/320MG
     Route: 065
     Dates: start: 202107

REACTIONS (3)
  - Anxiety [Unknown]
  - Diabetes mellitus [Unknown]
  - Blood pressure abnormal [Unknown]
